FAERS Safety Report 6227017-9 (Version None)
Quarter: 2009Q2

REPORT INFORMATION
  Report Type: 
  Country: None (occurrence: None)
  Receive Date: 20090612
  Receipt Date: 20090525
  Transmission Date: 20091009
  Serious: No
  Sender: FDA-Public Use
  Company Number: DE-ASTRAZENECA-2009PK01390

PATIENT
  Sex: Female

DRUGS (3)
  1. SEROQUEL [Suspect]
     Route: 048
  2. MARCUMAR [Interacting]
     Route: 048
  3. REMERGIL [Concomitant]

REACTIONS (2)
  - DRUG INTERACTION [None]
  - PROTHROMBIN TIME ABNORMAL [None]
